FAERS Safety Report 14494784 (Version 1)
Quarter: 2018Q1

REPORT INFORMATION
  Report Type: Spontaneous
  Country: NG (occurrence: NG)
  Receive Date: 20180206
  Receipt Date: 20180206
  Transmission Date: 20180509
  Serious: Yes (Hospitalization)
  Sender: FDA-Public Use
  Company Number: NG-BAYER-2018-022043

PATIENT
  Age: 41 Year
  Sex: Female

DRUGS (6)
  1. CHLORPHENIRAMINE MALEATE. [Suspect]
     Active Substance: CHLORPHENIRAMINE MALEATE
     Indication: STRESS
  2. PROMETAZIN [Suspect]
     Active Substance: PROMETHAZINE HYDROCHLORIDE
  3. ARTANE [Suspect]
     Active Substance: TRIHEXYPHENIDYL HYDROCHLORIDE
  4. DIAZEPAM. [Suspect]
     Active Substance: DIAZEPAM
  5. TEGRETOL [Suspect]
     Active Substance: CARBAMAZEPINE
  6. CHLORPHENIRAMINE MALEATE. [Suspect]
     Active Substance: CHLORPHENIRAMINE MALEATE
     Indication: PAIN

REACTIONS (2)
  - Drug dependence [None]
  - Drug abuse [None]
